FAERS Safety Report 10293918 (Version 1)
Quarter: 2014Q3

REPORT INFORMATION
  Report Type: Spontaneous
  Country: IN (occurrence: IN)
  Receive Date: 20140711
  Receipt Date: 20140711
  Transmission Date: 20150326
  Serious: Yes (Hospitalization)
  Sender: FDA-Public Use
  Company Number: IN-SUN PHARMACEUTICAL INDUSTRIES LTD-2014SUN01471

PATIENT

DRUGS (4)
  1. PHENYTOIN SODIUM. [Suspect]
     Active Substance: PHENYTOIN SODIUM
     Indication: GENERALISED TONIC-CLONIC SEIZURE
     Dosage: TWO HALF LOADING DOSE
     Route: 065
  2. MIDAZOLAM [Concomitant]
     Active Substance: MIDAZOLAM\MIDAZOLAM HYDROCHLORIDE
     Indication: CONVULSION
  3. NUTMEG. [Suspect]
     Active Substance: NUTMEG
     Indication: FLATULENCE
     Route: 065
  4. PHENOBARBITONE [Concomitant]
     Active Substance: PHENOBARBITAL
     Indication: CONVULSION

REACTIONS (6)
  - Visual pathway disorder [Recovered/Resolved]
  - Choreoathetosis [Recovered/Resolved]
  - Nystagmus [Recovered/Resolved]
  - Extrapyramidal disorder [Recovered/Resolved]
  - Convulsion [Recovered/Resolved]
  - Toxicity to various agents [Recovered/Resolved]
